FAERS Safety Report 4381840-4 (Version None)
Quarter: 2004Q2

REPORT INFORMATION
  Report Type: 
  Country: None (occurrence: None)
  Receive Date: 20040617
  Receipt Date: 20040603
  Transmission Date: 20050107
  Serious: Yes (Hospitalization)
  Sender: FDA-Public Use
  Company Number: PANC00302002180

PATIENT
  Age: 17 Year
  Sex: Female
  Weight: 36.9 kg

DRUGS (9)
  1. CREON [Suspect]
     Indication: CYSTIC FIBROSIS PANCREATIC
     Dosage: 6 G DAILY PO
     Route: 048
     Dates: start: 20001114, end: 20040316
  2. PANVITAN (VITAMINS) [Concomitant]
  3. CLARITHROMYCIN [Concomitant]
  4. KAYWAN (PHYTOMENADIONE) [Concomitant]
  5. IBUPROFEN [Concomitant]
  6. VENETLIN (SALBUTAMOL SULFATE) [Concomitant]
  7. SODIUM CHLORIDE 10% (SODIUM CHLORIDE) [Concomitant]
  8. MUCOSOLVAN (AMBROXOL HYDROCHLORIDE) [Concomitant]
  9. MUCODYNE (CARBOCISTEINE) [Concomitant]

REACTIONS (5)
  - BRONCHITIS ACUTE [None]
  - INFECTION [None]
  - MALNUTRITION [None]
  - PCO2 INCREASED [None]
  - PO2 DECREASED [None]
